FAERS Safety Report 9126732 (Version 1)
Quarter: 2013Q1

REPORT INFORMATION
  Report Type: Spontaneous
  Country: US (occurrence: US)
  Receive Date: 20130122
  Receipt Date: 20130122
  Transmission Date: 20140127
  Serious: Yes (Other)
  Sender: FDA-Public Use
  Company Number: US-ELI_LILLY_AND_COMPANY-US201301003760

PATIENT
  Sex: Female

DRUGS (3)
  1. CYMBALTA [Suspect]
     Indication: DEPRESSION
     Dosage: 30 MG, QD
     Dates: start: 20121201, end: 20130110
  2. SYNTHROID [Concomitant]
     Indication: THYROID DISORDER
  3. PEPCID [Concomitant]
     Indication: ULCER

REACTIONS (13)
  - Rash generalised [Not Recovered/Not Resolved]
  - Face oedema [Not Recovered/Not Resolved]
  - Swollen tongue [Not Recovered/Not Resolved]
  - Choking sensation [Not Recovered/Not Resolved]
  - Tongue discolouration [Not Recovered/Not Resolved]
  - Mood swings [Not Recovered/Not Resolved]
  - Nausea [Not Recovered/Not Resolved]
  - Vomiting [Not Recovered/Not Resolved]
  - Nervousness [Not Recovered/Not Resolved]
  - Peripheral coldness [Not Recovered/Not Resolved]
  - Insomnia [Not Recovered/Not Resolved]
  - Flushing [Not Recovered/Not Resolved]
  - Dry mouth [Not Recovered/Not Resolved]
